FAERS Safety Report 10400694 (Version 1)
Quarter: 2014Q3

REPORT INFORMATION
  Report Type: Spontaneous
  Country: AU (occurrence: AU)
  Receive Date: 20140821
  Receipt Date: 20140821
  Transmission Date: 20150326
  Serious: Yes (Other)
  Sender: FDA-Public Use
  Company Number: AU-ALLERGAN-1417801US

PATIENT
  Age: 23 Year
  Sex: Female

DRUGS (2)
  1. EFFEXOR [Suspect]
     Active Substance: VENLAFAXINE HYDROCHLORIDE
     Indication: DEPRESSION
  2. ZORAC 0.1% TAZAROTENE 1.0 MG/G GEL TUBE [Suspect]
     Active Substance: TAZAROTENE
     Indication: ACNE
     Dosage: 1 DF, QD
     Route: 061
     Dates: start: 20070715, end: 20070815

REACTIONS (1)
  - Abortion spontaneous [Unknown]

NARRATIVE: CASE EVENT DATE: 20070915
